FAERS Safety Report 4442543-0 (Version None)
Quarter: 2004Q3

REPORT INFORMATION
  Report Type: 
  Country: None (occurrence: None)
  Receive Date: 20040903
  Receipt Date: 20040712
  Transmission Date: 20050211
  Serious: Yes (Other)
  Sender: FDA-Public Use
  Company Number: 2004UW14383

PATIENT
  Age: 68 Year
  Sex: Female
  Weight: 58.9676 kg

DRUGS (3)
  1. CRESTOR [Suspect]
     Dates: start: 20040420
  2. HEART MEDICATION [Concomitant]
  3. BLADDER MEDICATION [Concomitant]

REACTIONS (1)
  - SOMNOLENCE [None]
